FAERS Safety Report 13646659 (Version 1)
Quarter: 2017Q2

REPORT INFORMATION
  Report Type: Spontaneous
  Country: US (occurrence: US)
  Receive Date: 20170613
  Receipt Date: 20170613
  Transmission Date: 20170830
  Serious: No
  Sender: FDA-Public Use
  Company Number: US-PFIZER INC-2017250310

PATIENT
  Age: 62 Year
  Sex: Male
  Weight: 90.72 kg

DRUGS (2)
  1. SUTENT [Suspect]
     Active Substance: SUNITINIB MALATE
     Dosage: 50 MG, CYCLIC (ONCE A DAY FOR 14 DAYS ON AND 7 DAYS OFF)
     Route: 048
     Dates: start: 201407
  2. SUTENT [Suspect]
     Active Substance: SUNITINIB MALATE
     Indication: RENAL CELL CARCINOMA
     Dosage: 50 MG, CYCLIC (DAILY FOR 2 WEEKS ON AND 1 WEEK OFF)

REACTIONS (4)
  - Disorientation [Not Recovered/Not Resolved]
  - Feeling abnormal [Unknown]
  - Confusional state [Not Recovered/Not Resolved]
  - Memory impairment [Not Recovered/Not Resolved]

NARRATIVE: CASE EVENT DATE: 2017
